FAERS Safety Report 8614599-2 (Version None)
Quarter: 2012Q3

REPORT INFORMATION
  Report Type: 
  Country: None (occurrence: None)
  Receive Date: 20120823
  Receipt Date: 20120821
  Transmission Date: 20120928
  Serious: Yes (Other)
  Sender: FDA-Public Use
  Company Number: PHHY2012NL072376

PATIENT
  Sex: Male

DRUGS (4)
  1. FIRMAGON [Concomitant]
     Dosage: 80 MG, ONCE EVERY MONTH
  2. ZOMETA [Suspect]
     Indication: PROSTATE CANCER METASTATIC
     Dosage: 4 MG/100ML, 1X PER 28 DAYS
     Dates: start: 20110210
  3. ZOMETA [Suspect]
     Dosage: 4 MG/100ML, 1X PER 28 DAYS
     Dates: start: 20120821
  4. ZOMETA [Suspect]
     Dosage: 4 MG/100ML, 1X PER 28 DAYS
     Dates: start: 20120723

REACTIONS (2)
  - HYPERCHOLESTEROLAEMIA [None]
  - DIABETES MELLITUS [None]
